FAERS Safety Report 8808694 (Version 2)
Quarter: 2012Q4

REPORT INFORMATION
  Report Type: Report from Study
  Country: JP (occurrence: JP)
  Receive Date: 20120926
  Receipt Date: 20121016
  Transmission Date: 20130627
  Serious: Yes (Hospitalization)
  Sender: FDA-Public Use
  Company Number: JP-MYLANLABS-2012S1019175

PATIENT
  Age: 65 Year
  Sex: Male
  Weight: 70 kg

DRUGS (14)
  1. EPIRUBICIN [Suspect]
     Indication: HEPATIC NEOPLASM MALIGNANT
     Dosage: Daily dose: 30mg/body
     Route: 013
     Dates: start: 20120821, end: 20120821
  2. TSU-68 [Suspect]
     Indication: HEPATIC NEOPLASM MALIGNANT
     Route: 048
     Dates: start: 20120827
  3. TSU-68 [Suspect]
     Indication: HEPATIC NEOPLASM MALIGNANT
     Dates: start: 20121003
  4. PARIET [Concomitant]
     Indication: GASTROOESOPHAGEAL REFLUX DISEASE
     Route: 048
  5. TAMSULOSIN [Concomitant]
     Indication: BENIGN PROSTATIC HYPERPLASIA
     Route: 048
  6. URSODEOXYCHOLIC ACID [Concomitant]
     Indication: HEPATITIS C
     Route: 048
  7. SELTEPNON [Concomitant]
     Indication: PROPHYLAXIS
     Route: 048
  8. ATELEC [Concomitant]
     Indication: RHINITIS ALLERGIC
     Route: 048
  9. BLOPRESS [Concomitant]
     Indication: HYPERTENSION
     Route: 048
  10. SOLDANA [Concomitant]
     Indication: CONSTIPATION
     Route: 048
  11. ROHIPNOL [Concomitant]
     Indication: INSOMNIA
     Route: 048
  12. LENDORMIN [Concomitant]
     Indication: INSOMNIA
     Route: 048
  13. LOXONIN [Concomitant]
     Indication: PYREXIA
     Route: 048
  14. BIO-THREE [Concomitant]
     Indication: GASTROINTESTINAL DISORDER
     Route: 048

REACTIONS (1)
  - Liver abscess [Recovered/Resolved]
